FAERS Safety Report 7527693-4 (Version None)
Quarter: 2011Q2

REPORT INFORMATION
  Report Type: 
  Country: None (occurrence: None)
  Receive Date: 20110607
  Receipt Date: 20110524
  Transmission Date: 20111010
  Serious: Yes (Hospitalization, Other)
  Sender: FDA-Public Use
  Company Number: PHHY2010FR90992

PATIENT
  Sex: Female
  Weight: 54 kg

DRUGS (1)
  1. ZOMETA [Suspect]
     Indication: METASTASES TO BONE
     Dosage: 4 MG,
     Route: 042
     Dates: start: 20080901, end: 20100521

REACTIONS (3)
  - ASTHENIA [None]
  - NERVOUS SYSTEM DISORDER [None]
  - HYPOAESTHESIA [None]
